FAERS Safety Report 10562289 (Version 1)
Quarter: 2014Q4

REPORT INFORMATION
  Report Type: Spontaneous
  Country: US (occurrence: None)
  Receive Date: 20141031
  Receipt Date: 20141031
  Transmission Date: 20150529
  Serious: Yes (Other)
  Sender: FDA-Public Use
  Company Number: 2595893

PATIENT
  Sex: Female

DRUGS (1)
  1. VANCOMYCIN HYDROCHLORIDE. [Suspect]
     Active Substance: VANCOMYCIN HYDROCHLORIDE
     Indication: BACTERIAL INFECTION
     Dates: start: 20140905, end: 20140914

REACTIONS (5)
  - Pyrexia [None]
  - Chills [None]
  - Dysuria [None]
  - Bedridden [None]
  - Product quality issue [None]

NARRATIVE: CASE EVENT DATE: 20140905
